FAERS Safety Report 5675419-1 (Version None)
Quarter: 2008Q1

REPORT INFORMATION
  Report Type: 
  Country: None (occurrence: None)
  Receive Date: 20080320
  Receipt Date: 20080309
  Transmission Date: 20080703
  Serious: Yes (Hospitalization, Other)
  Sender: FDA-Public Use
  Company Number: US-AMGEN-QUU268768

PATIENT
  Sex: Female

DRUGS (2)
  1. ENBREL [Suspect]
     Indication: RHEUMATOID ARTHRITIS
     Route: 058
     Dates: start: 20060101
  2. ENBREL [Suspect]
     Indication: JUVENILE ARTHRITIS

REACTIONS (3)
  - ARTHRITIS [None]
  - BACK PAIN [None]
  - INJECTION SITE PAIN [None]
